FAERS Safety Report 7498630-6 (Version None)
Quarter: 2011Q2

REPORT INFORMATION
  Report Type: 
  Country: None (occurrence: None)
  Receive Date: 20110524
  Receipt Date: 20110506
  Transmission Date: 20111010
  Serious: Yes (Hospitalization, Other)
  Sender: FDA-Public Use
  Company Number: US-BAYER-201026907NA

PATIENT
  Age: 31 Year
  Sex: Female
  Weight: 88.435 kg

DRUGS (7)
  1. MULTI-VITAMIN [Concomitant]
  2. ACETAMINOPHEN W/ CODEINE [Concomitant]
     Dosage: UNK
     Route: 048
     Dates: start: 20080408
  3. YAZ [Suspect]
  4. XANAX [Concomitant]
  5. YAZ [Suspect]
     Indication: PREMENSTRUAL SYNDROME
  6. YAZ [Suspect]
     Indication: ACNE
     Dosage: UNK
     Route: 048
     Dates: start: 20080601, end: 20100501
  7. AMOXICILLIN [Concomitant]
     Dosage: UNK
     Route: 048
     Dates: start: 20080708

REACTIONS (4)
  - PAIN [None]
  - EMOTIONAL DISTRESS [None]
  - GALLBLADDER INJURY [None]
  - CHOLECYSTITIS [None]
